FAERS Safety Report 13670545 (Version 1)
Quarter: 2017Q2

REPORT INFORMATION
  Report Type: Spontaneous
  Country: IT (occurrence: IT)
  Receive Date: 20170620
  Receipt Date: 20170620
  Transmission Date: 20170830
  Serious: Yes (Hospitalization)
  Sender: FDA-Public Use
  Company Number: IT-BAYER-2017-115022

PATIENT
  Age: 85 Year
  Sex: Female

DRUGS (1)
  1. ASPIRINA 500 MG [Suspect]
     Active Substance: ASPIRIN
     Indication: PAIN
     Dosage: 500 MG, QD
     Route: 048
     Dates: start: 20170101, end: 20170328

REACTIONS (1)
  - Normochromic normocytic anaemia [Unknown]

NARRATIVE: CASE EVENT DATE: 20170328
